FAERS Safety Report 7592783-7 (Version None)
Quarter: 2011Q3

REPORT INFORMATION
  Report Type: 
  Country: None (occurrence: None)
  Receive Date: 20110706
  Receipt Date: 20110629
  Transmission Date: 20111222
  Serious: No
  Sender: FDA-Public Use
  Company Number: US-PFIZER INC-US-WYE-H04070008

PATIENT
  Sex: Male

DRUGS (1)
  1. ADVIL LIQUI-GELS [Suspect]
     Dosage: UNK
     Dates: start: 20060401

REACTIONS (1)
  - FOREIGN BODY [None]
